FAERS Safety Report 7910612-6 (Version None)
Quarter: 2011Q4

REPORT INFORMATION
  Report Type: 
  Country: None (occurrence: None)
  Receive Date: 20111111
  Receipt Date: 20111103
  Transmission Date: 20120403
  Serious: Yes (Other)
  Sender: FDA-Public Use
  Company Number: US-US-EMD SERONO, INC.-7020527

PATIENT
  Sex: Female
  Weight: 86 kg

DRUGS (7)
  1. NEURONTIN [Concomitant]
     Indication: MULTIPLE SCLEROSIS
  2. ANALGESIC [Concomitant]
     Indication: PREMEDICATION
  3. BACLOFEN [Concomitant]
     Indication: MULTIPLE SCLEROSIS
  4. DIOVAN [Concomitant]
     Indication: HYPERTENSION
  5. HYDROCHLOROTHIAZIDE [Concomitant]
     Indication: HYPERTENSION
  6. HYDROCHLOROTHIAZIDE [Concomitant]
     Indication: SWELLING
  7. REBIF [Suspect]
     Indication: MULTIPLE SCLEROSIS
     Route: 058
     Dates: start: 20100407

REACTIONS (2)
  - BRONCHITIS [None]
  - CHRONIC OBSTRUCTIVE PULMONARY DISEASE [None]
